FAERS Safety Report 16514753 (Version 1)
Quarter: 2019Q3

REPORT INFORMATION
  Report Type: Report from Study
  Country: None (occurrence: IT)
  Receive Date: 20190702
  Receipt Date: 20190702
  Transmission Date: 20191004
  Serious: Yes (Hospitalization)
  Sender: FDA-Public Use
  Company Number: IT-ABBVIE-19K-083-2838981-00

PATIENT
  Age: 77 Year
  Sex: Male

DRUGS (1)
  1. DUODOPA [Suspect]
     Active Substance: CARBIDOPA\LEVODOPA
     Indication: PARKINSON^S DISEASE
     Dosage: MD: 10+3??CR: 2,5??ED: 2,5
     Route: 050
     Dates: start: 20190604, end: 201906

REACTIONS (2)
  - Peritonitis [Unknown]
  - Duodenal perforation [Unknown]

NARRATIVE: CASE EVENT DATE: 201906
